FAERS Safety Report 15287658 (Version 1)
Quarter: 2018Q3

REPORT INFORMATION
  Report Type: Spontaneous
  Country: GB (occurrence: GB)
  Receive Date: 20180817
  Receipt Date: 20180817
  Transmission Date: 20181010
  Serious: Yes (Hospitalization, Disabling)
  Sender: FDA-Public Use
  Company Number: GB-TEVA-2018-GB-942986

PATIENT
  Age: 71 Year
  Sex: Female
  Weight: 61.68 kg

DRUGS (4)
  1. PANTOPRAZOLE SODIUM. [Concomitant]
     Active Substance: PANTOPRAZOLE SODIUM
     Route: 065
  2. THYROXINE [Concomitant]
     Active Substance: LEVOTHYROXINE
     Route: 065
  3. HYDROXOCOBALAMIN [Concomitant]
     Active Substance: HYDROXOCOBALAMIN
     Route: 065
  4. NITROFURANTOIN. [Suspect]
     Active Substance: NITROFURANTOIN
     Indication: CYSTITIS
     Dosage: 400 MILLIGRAM DAILY;
     Route: 048
     Dates: start: 20180704, end: 20180708

REACTIONS (6)
  - Pyrexia [Unknown]
  - Peripheral swelling [Recovered/Resolved with Sequelae]
  - Pain [Unknown]
  - Vomiting [Recovered/Resolved]
  - Petechiae [Recovered/Resolved with Sequelae]
  - Peripheral coldness [Unknown]

NARRATIVE: CASE EVENT DATE: 20180705
